FAERS Safety Report 18787294 (Version 2)
Quarter: 2021Q1

REPORT INFORMATION
  Report Type: Spontaneous
  Country: US (occurrence: US)
  Receive Date: 20210126
  Receipt Date: 20210205
  Transmission Date: 20210419
  Serious: Yes (Hospitalization, Other)
  Sender: FDA-Public Use
  Company Number: US-PFIZER INC-2021060417

PATIENT
  Age: 65 Year
  Sex: Female

DRUGS (2)
  1. CLINDAMYCIN PHOSPHATE. [Suspect]
     Active Substance: CLINDAMYCIN PHOSPHATE
     Indication: ANTIBIOTIC THERAPY
     Dosage: UNK
     Route: 042
  2. CLINDAMYCIN PHOSPHATE. [Suspect]
     Active Substance: CLINDAMYCIN PHOSPHATE
     Indication: ANTIBIOTIC THERAPY
     Dosage: UNK

REACTIONS (7)
  - Drug ineffective [Unknown]
  - Ophthalmic vein thrombosis [Unknown]
  - Lemierre syndrome [Unknown]
  - Osteomyelitis [Unknown]
  - Pathogen resistance [Unknown]
  - Cavernous sinus thrombosis [Unknown]
  - Subdural abscess [Unknown]
